FAERS Safety Report 25970019 (Version 1)
Quarter: 2025Q4

REPORT INFORMATION
  Report Type: Spontaneous
  Country: US (occurrence: US)
  Receive Date: 20251028
  Receipt Date: 20251028
  Transmission Date: 20260118
  Serious: Yes (Hospitalization)
  Sender: ELI LILLY AND COMPANY
  Company Number: US-ELI_LILLY_AND_COMPANY-US202510021268

PATIENT
  Age: 55 Year
  Sex: Female

DRUGS (10)
  1. ZEPBOUND [Suspect]
     Active Substance: TIRZEPATIDE
     Indication: Weight control
     Dosage: 2.5 MG, WEEKLY (1/W)
     Route: 065
     Dates: start: 20250902, end: 20251014
  2. ZEPBOUND [Suspect]
     Active Substance: TIRZEPATIDE
     Indication: Weight control
     Dosage: 2.5 MG, WEEKLY (1/W)
     Route: 065
     Dates: start: 20250902, end: 20251014
  3. ZEPBOUND [Suspect]
     Active Substance: TIRZEPATIDE
     Indication: Weight control
     Dosage: 2.5 MG, WEEKLY (1/W)
     Route: 065
     Dates: start: 20250902, end: 20251014
  4. ZEPBOUND [Suspect]
     Active Substance: TIRZEPATIDE
     Indication: Weight control
     Dosage: 2.5 MG, WEEKLY (1/W)
     Route: 065
     Dates: start: 20250902, end: 20251014
  5. FLUOXETINE [Concomitant]
     Active Substance: FLUOXETINE HYDROCHLORIDE
     Indication: Depression
     Dosage: 20 MG, UNKNOWN
     Route: 065
     Dates: start: 20010101
  6. ATORVASTATIN [Concomitant]
     Active Substance: ATORVASTATIN
     Indication: Blood cholesterol increased
     Dosage: 10 MG, UNKNOWN
     Route: 065
     Dates: start: 20241101
  7. HYDROCHLOROTHIAZIDE [Concomitant]
     Active Substance: HYDROCHLOROTHIAZIDE
     Indication: Hypertension
     Dosage: 25 MG, UNKNOWN
     Route: 065
  8. LEVOTHYROXINE [Concomitant]
     Active Substance: LEVOTHYROXINE
     Indication: Hypothyroidism
     Dosage: 100 UG, UNKNOWN
     Route: 065
     Dates: start: 20220101
  9. LISINOPRIL [Concomitant]
     Active Substance: LISINOPRIL
     Indication: Hypertension
     Dosage: 20 MG, UNKNOWN
     Route: 065
  10. POTASSIUM CHLORIDE [Concomitant]
     Active Substance: POTASSIUM CHLORIDE
     Indication: Hypokalaemic syndrome
     Dosage: 20 MEQ, UNKNOWN
     Route: 065

REACTIONS (2)
  - Colitis [Recovering/Resolving]
  - Urinary tract infection [Recovering/Resolving]

NARRATIVE: CASE EVENT DATE: 20250930
